FAERS Safety Report 10005823 (Version 1)
Quarter: 2014Q1

REPORT INFORMATION
  Report Type: Spontaneous
  Country: IT (occurrence: IT)
  Receive Date: 20140313
  Receipt Date: 20140313
  Transmission Date: 20141002
  Serious: Yes (Hospitalization)
  Sender: FDA-Public Use
  Company Number: IT-RANBAXY-2014RR-78835

PATIENT
  Age: 22 Year
  Sex: Female

DRUGS (1)
  1. PARACETAMOL [Suspect]
     Indication: INTENTIONAL SELF-INJURY
     Dosage: 9 G COMPLETE
     Route: 048
     Dates: start: 20140210, end: 20140210

REACTIONS (3)
  - Abdominal pain [Not Recovered/Not Resolved]
  - Drug abuse [Not Recovered/Not Resolved]
  - Transaminases increased [Not Recovered/Not Resolved]
